APPROVED DRUG PRODUCT: VENTOLIN HFA
Active Ingredient: ALBUTEROL SULFATE
Strength: EQ 0.09MG BASE/INH
Dosage Form/Route: AEROSOL, METERED;INHALATION
Application: N020983 | Product #001 | TE Code: BX
Applicant: GLAXOSMITHKLINE INTELLECTUAL PROPERTY LTD ENGLAND
Approved: Apr 19, 2001 | RLD: Yes | RS: Yes | Type: RX